FAERS Safety Report 4901796-2 (Version None)
Quarter: 2006Q1

REPORT INFORMATION
  Report Type: 
  Country: None (occurrence: None)
  Receive Date: 20060201
  Receipt Date: 20060201
  Transmission Date: 20060701
  Serious: Yes (Life-Threatening, Hospitalization)
  Sender: FDA-Public Use
  Company Number: None

PATIENT
  Age: 59 Year
  Sex: Male
  Weight: 91.6266 kg

DRUGS (10)
  1. FENTANYL [Suspect]
     Indication: SEDATION
     Dosage: IV
     Route: 042
  2. ATENOLOL [Concomitant]
  3. CANDESARTAN CILEXETIL [Concomitant]
  4. FLUNISOLIDE [Concomitant]
  5. FUROSEMIDE [Concomitant]
  6. IBUPROFEN [Concomitant]
  7. ADALAT CC [Concomitant]
  8. OMEPRAZOLE [Concomitant]
  9. SILDENAFIL CITRATE [Concomitant]
  10. SIMVASTATIN [Concomitant]

REACTIONS (2)
  - ANAESTHETIC COMPLICATION [None]
  - BRADYCARDIA [None]
